FAERS Safety Report 17996001 (Version 1)
Quarter: 2020Q3

REPORT INFORMATION
  Report Type: Spontaneous
  Country: US (occurrence: US)
  Receive Date: 20200708
  Receipt Date: 20200708
  Transmission Date: 20201103
  Serious: No
  Sender: FDA-Public Use
  Company Number: US-GALDERMA-US2020026612

PATIENT

DRUGS (2)
  1. AKLIEF [Suspect]
     Active Substance: TRIFAROTENE
     Indication: PRODUCT USED FOR UNKNOWN INDICATION
     Dosage: 0.005%
     Route: 061
  2. AKLIEF [Suspect]
     Active Substance: TRIFAROTENE
     Dosage: 0.005%
     Route: 061

REACTIONS (2)
  - Acne [Unknown]
  - Skin irritation [Unknown]
